FAERS Safety Report 25131255 (Version 2)
Quarter: 2025Q3

REPORT INFORMATION
  Report Type: Spontaneous
  Country: US (occurrence: US)
  Receive Date: 20250327
  Receipt Date: 20250818
  Transmission Date: 20251020
  Serious: No
  Sender: ELI LILLY AND COMPANY
  Company Number: US-ELI_LILLY_AND_COMPANY-US202503021355

PATIENT
  Age: 46 Year
  Sex: Male

DRUGS (1)
  1. VERZENIO [Suspect]
     Active Substance: ABEMACICLIB
     Indication: Malignant nipple neoplasm male
     Dosage: 100 MG, BID
     Route: 048
     Dates: start: 20220118

REACTIONS (1)
  - Diarrhoea [Not Recovered/Not Resolved]
